FAERS Safety Report 4744638-0 (Version None)
Quarter: 2005Q3

REPORT INFORMATION
  Report Type: 
  Country: None (occurrence: None)
  Receive Date: 20050812
  Receipt Date: 20050812
  Transmission Date: 20060218
  Serious: Yes (Other)
  Sender: FDA-Public Use
  Company Number: None

PATIENT
  Age: 70 Year
  Sex: Female
  Weight: 113.3993 kg

DRUGS (2)
  1. PROPOXYPHENE APAP  100 MG [Suspect]
     Indication: PAIN
     Dosage: QID  ORAL
     Route: 048
     Dates: start: 20030101, end: 20050813
  2. CLONAZEPAM [Suspect]
     Indication: INSOMNIA
     Dosage: QHS  ORAL
     Route: 048
     Dates: start: 20030101, end: 20030813

REACTIONS (1)
  - DRUG INEFFECTIVE [None]
